FAERS Safety Report 18230429 (Version 1)
Quarter: 2020Q3

REPORT INFORMATION
  Report Type: Spontaneous
  Country: US (occurrence: US)
  Receive Date: 20200903
  Receipt Date: 20200903
  Transmission Date: 20201103
  Serious: No
  Sender: FDA-Public Use
  Company Number: US-GILEAD-2020-0493024

PATIENT
  Sex: Male

DRUGS (4)
  1. PROBENECID. [Concomitant]
     Active Substance: PROBENECID
  2. DEVIL^S CLAW [HARPAGOPHYTUM PROCUMBENS ROOT] [Concomitant]
  3. ALLOPURINOL. [Concomitant]
     Active Substance: ALLOPURINOL
  4. GENVOYA [Suspect]
     Active Substance: COBICISTAT\ELVITEGRAVIR\EMTRICITABINE\TENOFOVIR ALAFENAMIDE FUMARATE
     Indication: HIV INFECTION
     Route: 065

REACTIONS (8)
  - Abdominal tenderness [Unknown]
  - Lipodystrophy acquired [Unknown]
  - Gout [Unknown]
  - Pain [Unknown]
  - Blood cholesterol increased [Unknown]
  - Dyspepsia [Unknown]
  - Constipation [Unknown]
  - Product dispensing error [Unknown]
